FAERS Safety Report 7782671-5 (Version None)
Quarter: 2011Q3

REPORT INFORMATION
  Report Type: 
  Country: None (occurrence: None)
  Receive Date: 20110928
  Receipt Date: 20110922
  Transmission Date: 20111222
  Serious: Yes (Death, Hospitalization)
  Sender: FDA-Public Use
  Company Number: PHHY2011JP84799

PATIENT
  Age: 77 Year
  Sex: Male

DRUGS (2)
  1. EXELON [Suspect]
     Indication: DEMENTIA ALZHEIMER'S TYPE
     Dosage: 4.5 MG DAILY
     Route: 062
     Dates: end: 20110908
  2. EXELON [Suspect]
     Dosage: 9.0 MG DAILY
     Route: 062
     Dates: start: 20110909, end: 20110909

REACTIONS (3)
  - CHOKING [None]
  - REGURGITATION [None]
  - VOMITING [None]
